FAERS Safety Report 10020656 (Version 1)
Quarter: 2013Q4

REPORT INFORMATION
  Report Type: Spontaneous
  Country: DE (occurrence: None)
  Receive Date: 20131122
  Receipt Date: 20131122
  Transmission Date: 20140711
  Serious: Yes (Other)
  Sender: FDA-Public Use
  Company Number: M-EU-2013100248

PATIENT
  Age: 75 Year
  Sex: Female

DRUGS (4)
  1. THIOCTACID ACID (THIOCTIC ACID) (SOLUTION) [Suspect]
     Indication: NEURALGIA
     Route: 042
     Dates: start: 20131015, end: 20131016
  2. LYRICA [Concomitant]
  3. TALVOSILEN [Concomitant]
  4. CARBIMAZOL 2.5 MG (CARBIMAZOLE) [Concomitant]

REACTIONS (4)
  - Musculoskeletal stiffness [None]
  - Pain in extremity [None]
  - Sleep disorder [None]
  - Off label use [None]
